FAERS Safety Report 4732227-3 (Version None)
Quarter: 2005Q3

REPORT INFORMATION
  Report Type: 
  Country: None (occurrence: None)
  Receive Date: 20050725
  Receipt Date: 20040720
  Transmission Date: 20060218
  Serious: Yes (Death)
  Sender: FDA-Public Use
  Company Number: USA-2004-0016075

PATIENT
  Age: 43 Year
  Sex: Male

DRUGS (8)
  1. MORPHINE SULFATE [Suspect]
  2. HYDROCODONE (HYDROCODONE) [Suspect]
  3. ACETAMINOPHEN [Suspect]
  4. CITALOPRAM (CITALOPRAM) [Suspect]
  5. ALPRAZOLAM [Suspect]
  6. BENZODIAZEPINE DERIVATIVES [Suspect]
  7. ETHANOL (ETHANOL) [Suspect]
  8. GLUCOPHAGE [Concomitant]

REACTIONS (3)
  - ACCIDENTAL OVERDOSE [None]
  - MULTIPLE DRUG OVERDOSE [None]
  - OVERDOSE [None]
